FAERS Safety Report 8425151-6 (Version None)
Quarter: 2012Q2

REPORT INFORMATION
  Report Type: 
  Country: None (occurrence: None)
  Receive Date: 20120531
  Receipt Date: 20120518
  Transmission Date: 20120825
  Serious: Yes (Other)
  Sender: FDA-Public Use
  Company Number: WAES 1205USA04419

PATIENT
  Age: 93 Year
  Sex: Female

DRUGS (8)
  1. LANIRAPID [Concomitant]
  2. PILSICAINIDE HYDROCHLORIDE [Concomitant]
  3. CARVEDILOL [Concomitant]
  4. WARFARIN POTASSIUM [Concomitant]
  5. AMLODIPINE BESYLATE [Concomitant]
  6. JANUVIA [Suspect]
     Indication: TYPE 2 DIABETES MELLITUS
     Dosage: 25 MG/DAILY PO
     Route: 048
     Dates: start: 20110107
  7. SPIRONOLACTONE [Concomitant]
  8. TORSEMIDE [Concomitant]

REACTIONS (5)
  - BRONCHITIS [None]
  - WHITE BLOOD CELL COUNT DECREASED [None]
  - CHOKING [None]
  - BLOOD PRESSURE DECREASED [None]
  - PNEUMONIA [None]
